FAERS Safety Report 5957949-8 (Version None)
Quarter: 2008Q4

REPORT INFORMATION
  Report Type: 
  Country: None (occurrence: None)
  Receive Date: 20081119
  Receipt Date: 20081112
  Transmission Date: 20090506
  Serious: Yes (Other)
  Sender: FDA-Public Use
  Company Number: CA-JNJFOC-20080803310

PATIENT
  Sex: Male
  Weight: 58 kg

DRUGS (6)
  1. REMICADE [Suspect]
     Dosage: RECEIVED TOTAL OF 20 INFUSIONS
     Route: 042
  2. REMICADE [Suspect]
     Route: 042
  3. REMICADE [Suspect]
     Indication: CROHN'S DISEASE
     Route: 042
  4. QUESTRAN [Concomitant]
  5. PANTOPRAZOLE SODIUM [Concomitant]
  6. IMURAN [Concomitant]
     Route: 048

REACTIONS (1)
  - TUBERCULOSIS [None]
